FAERS Safety Report 17882574 (Version 4)
Quarter: 2021Q2

REPORT INFORMATION
  Report Type: Spontaneous
  Country: US (occurrence: US)
  Receive Date: 20200610
  Receipt Date: 20210609
  Transmission Date: 20210717
  Serious: Yes (Other)
  Sender: FDA-Public Use
  Company Number: US-ELI_LILLY_AND_COMPANY-US202006003446

PATIENT
  Age: 58 Year
  Sex: Female

DRUGS (2)
  1. HUMATROPE [Suspect]
     Active Substance: SOMATROPIN
     Indication: HORMONE LEVEL ABNORMAL
     Dosage: UNK, UNKNOWN
     Route: 065
  2. HUMATROPE [Suspect]
     Active Substance: SOMATROPIN
     Indication: HYPOPITUITARISM
     Dosage: 0.40 MG, UNKNOWN
     Route: 065
     Dates: start: 2010, end: 201410

REACTIONS (3)
  - Breast cancer [Recovered/Resolved]
  - Depression [Unknown]
  - Mass [Recovering/Resolving]

NARRATIVE: CASE EVENT DATE: 201411
